FAERS Safety Report 15323456 (Version 4)
Quarter: 2019Q2

REPORT INFORMATION
  Report Type: Spontaneous
  Country: US (occurrence: US)
  Receive Date: 20180827
  Receipt Date: 20190603
  Transmission Date: 20190711
  Serious: Yes (Other)
  Sender: FDA-Public Use
  Company Number: US-SA-2018SA234751

PATIENT
  Age: 69 Year
  Sex: Female
  Weight: 79.37 kg

DRUGS (5)
  1. EPIRUBICIN [Concomitant]
     Active Substance: EPIRUBICIN
  2. TAXOTERE [Suspect]
     Active Substance: DOCETAXEL
     Indication: BREAST CANCER FEMALE
     Dosage: 100 MG, Q3W
     Route: 042
     Dates: start: 20120501, end: 20120501
  3. NEOSAR [Concomitant]
     Active Substance: CYCLOPHOSPHAMIDE
     Dosage: UNK
  4. TAXOTERE [Suspect]
     Active Substance: DOCETAXEL
     Dosage: 100 MG, Q3W
     Route: 042
     Dates: start: 20120611, end: 20120611
  5. 5-FLUOROURACIL [FLUOROURACIL SODIUM] [Concomitant]
     Active Substance: FLUOROURACIL SODIUM

REACTIONS (2)
  - Alopecia [Recovering/Resolving]
  - Psychological trauma [Unknown]

NARRATIVE: CASE EVENT DATE: 20130113
